FAERS Safety Report 16457675 (Version 1)
Quarter: 2019Q2

REPORT INFORMATION
  Report Type: Spontaneous
  Country: US (occurrence: US)
  Receive Date: 20190620
  Receipt Date: 20190620
  Transmission Date: 20190711
  Serious: No
  Sender: FDA-Public Use
  Company Number: US-PFIZER INC-2019256784

PATIENT
  Age: 72 Year
  Sex: Male

DRUGS (2)
  1. VIAGRA [Suspect]
     Active Substance: SILDENAFIL CITRATE
     Indication: SEXUAL DYSFUNCTION
     Dosage: 100 MG, AS NEEDED ( TWO TO THREE TIMES A WEEK BY MOUTH AS NEEDED)
     Route: 048
     Dates: start: 2015
  2. VIAGRA [Suspect]
     Active Substance: SILDENAFIL CITRATE
     Dosage: 50 MG, UNK

REACTIONS (2)
  - Therapeutic product effect incomplete [Unknown]
  - Product dispensing error [Unknown]
